FAERS Safety Report 8989737 (Version 2)
Quarter: 2013Q1

REPORT INFORMATION
  Report Type: Spontaneous
  Country: US (occurrence: US)
  Receive Date: 20121228
  Receipt Date: 20130110
  Transmission Date: 20140127
  Serious: Yes (Other)
  Sender: FDA-Public Use
  Company Number: US-JNJFOC-20121211167

PATIENT
  Age: 46 Year
  Sex: Male
  Weight: 120.2 kg

DRUGS (2)
  1. NUCYNTA IR [Suspect]
     Indication: INTERVERTEBRAL DISC PROTRUSION
     Route: 048
     Dates: start: 20121212, end: 20121219
  2. SERTRALINE [Concomitant]
     Indication: DEPRESSION
     Route: 048

REACTIONS (1)
  - Sleep apnoea syndrome [Not Recovered/Not Resolved]
